FAERS Safety Report 6162519-5 (Version None)
Quarter: 2009Q2

REPORT INFORMATION
  Report Type: 
  Country: None (occurrence: None)
  Receive Date: 20090417
  Receipt Date: 20090326
  Transmission Date: 20091009
  Serious: Yes (Other)
  Sender: FDA-Public Use
  Company Number: DSA_33482_2009

PATIENT
  Age: 66 Year
  Sex: Female
  Weight: 91 kg

DRUGS (21)
  1. TIAZAC [Suspect]
     Dosage: (240 MG QD ORAL)
     Route: 048
  2. ALTACE [Concomitant]
  3. CANESTEN /00212501/ [Concomitant]
  4. EZETROL [Concomitant]
  5. NITROGEN LIQUID [Concomitant]
  6. LASIX [Concomitant]
  7. IMOVANE [Concomitant]
  8. PLAVIX [Concomitant]
  9. FLOVENT [Concomitant]
  10. IMDUR [Concomitant]
  11. NOVAHISTEX /00083101/ [Concomitant]
  12. LIPITOR [Concomitant]
  13. NASONEX [Concomitant]
  14. PARIET [Concomitant]
  15. UNIDET [Concomitant]
  16. DOMPERIDONE [Concomitant]
  17. HYDROCORTISONE [Concomitant]
  18. OCUVITE EXTRA [Concomitant]
  19. ASPIRIN 10GR TIMED DISINTEGRATION TAB [Concomitant]
  20. ARTHROTEC [Concomitant]
  21. TIAZAC /00489702/ [Concomitant]

REACTIONS (5)
  - ABDOMINAL PAIN UPPER [None]
  - ARTHRALGIA [None]
  - DYSPHAGIA [None]
  - JOINT SWELLING [None]
  - MUSCULOSKELETAL CHEST PAIN [None]
